FAERS Safety Report 4625034-3 (Version None)
Quarter: 2005Q2

REPORT INFORMATION
  Report Type: 
  Country: None (occurrence: None)
  Receive Date: 20050401
  Receipt Date: 20050315
  Transmission Date: 20051028
  Serious: Yes (Other)
  Sender: FDA-Public Use
  Company Number: PHBS2005BE03787

PATIENT
  Age: 27 Year
  Sex: Female

DRUGS (2)
  1. HARTMANN [Concomitant]
     Route: 008
  2. SYNTOCINON [Suspect]
     Indication: LABOUR INDUCTION
     Dosage: 1 AMP IN 500 ML GLUCOSE (10 ML/HOUR)
     Route: 042
     Dates: start: 20050312, end: 20050312

REACTIONS (5)
  - DRUG EXPOSURE DURING PREGNANCY [None]
  - FOETAL DISTRESS SYNDROME [None]
  - FOETAL HEART RATE DECELERATION [None]
  - NORMAL NEWBORN [None]
  - UTERINE HYPERTONUS [None]
